FAERS Safety Report 22244656 (Version 1)
Quarter: 2023Q2

REPORT INFORMATION
  Report Type: Other
  Country: BG (occurrence: BG)
  Receive Date: 20230424
  Receipt Date: 20230424
  Transmission Date: 20230721
  Serious: Yes (Hospitalization)
  Sender: FDA-Public Use
  Company Number: BG-WOERWAG PHARMA GMBH-23151

PATIENT
  Age: 67 Year
  Sex: Female

DRUGS (2)
  1. IBANDRONIC ACID [Suspect]
     Active Substance: IBANDRONIC ACID
     Indication: Product used for unknown indication
     Dosage: ONCE A MONTH
     Route: 065
  2. BISOPROLOL FUMARATE [Suspect]
     Active Substance: BISOPROLOL FUMARATE
     Indication: Hypertensive heart disease
     Dosage: HALF A TABLET TWICE DAILY
     Route: 048

REACTIONS (2)
  - Basal cell carcinoma [Unknown]
  - Photosensitivity reaction [Unknown]
